FAERS Safety Report 8768806 (Version 3)
Quarter: 2012Q4

REPORT INFORMATION
  Report Type: 
  Country: DE (occurrence: DE)
  Receive Date: 20120906
  Receipt Date: 20121019
  Transmission Date: 20130627
  Serious: Yes (Other)
  Sender: FDA-Public Use
  Company Number: DE-ROCHE-1115326

PATIENT
  Age: 68 Year
  Sex: Female

DRUGS (3)
  1. BONVIVA [Suspect]
     Indication: OSTEOPOROSIS
     Route: 042
     Dates: start: 200809, end: 201102
  2. BONVIVA [Suspect]
     Indication: OSTEOPENIA
     Route: 042
     Dates: start: 20090717, end: 201102
  3. KINERET [Concomitant]
     Indication: CHONDROCALCINOSIS PYROPHOSPHATE
     Route: 065

REACTIONS (2)
  - Pathological fracture [Recovering/Resolving]
  - Hyperparathyroidism primary [Unknown]
